FAERS Safety Report 24294392 (Version 1)
Quarter: 2024Q3

REPORT INFORMATION
  Report Type: Spontaneous
  Country: GB (occurrence: GB)
  Receive Date: 20240906
  Receipt Date: 20240906
  Transmission Date: 20241017
  Serious: Yes (Hospitalization, Other)
  Sender: TEVA
  Company Number: GB-PHARMVIT-4556-3352-ER24-RN1155

PATIENT
  Age: 52 Year

DRUGS (1)
  1. PREDNISOLONE [Suspect]
     Active Substance: PREDNISOLONE
     Indication: Adverse drug reaction
     Route: 065

REACTIONS (3)
  - Immunosuppression [Recovered/Resolved]
  - Pneumocystis jirovecii infection [Recovered/Resolved]
  - Mycobacterium chelonae infection [Recovered/Resolved]
